FAERS Safety Report 8242780-3 (Version None)
Quarter: 2012Q1

REPORT INFORMATION
  Report Type: 
  Country: None (occurrence: None)
  Receive Date: 20120329
  Receipt Date: 20120321
  Transmission Date: 20120608
  Serious: Yes (Death)
  Sender: FDA-Public Use
  Company Number: SE-JNJFOC-20120311695

PATIENT

DRUGS (30)
  1. DOXORUBICIN HCL [Suspect]
     Indication: DIFFUSE LARGE B-CELL LYMPHOMA
     Route: 042
  2. VINCRISTINE [Suspect]
     Route: 065
  3. MITOXANTRONE [Suspect]
     Route: 065
  4. DOXORUBICIN HCL [Suspect]
     Route: 042
  5. DOXORUBICIN HCL [Suspect]
     Route: 042
  6. CYCLOPHOSPHAMIDE [Suspect]
     Indication: DIFFUSE LARGE B-CELL LYMPHOMA
     Route: 065
  7. CYCLOPHOSPHAMIDE [Suspect]
     Route: 065
  8. MITOXANTRONE [Suspect]
     Route: 065
  9. MITOXANTRONE [Suspect]
     Route: 065
  10. DOXORUBICIN HCL [Suspect]
     Route: 042
  11. CYCLOPHOSPHAMIDE [Suspect]
     Route: 065
  12. VINCRISTINE [Suspect]
     Route: 065
  13. DOXORUBICIN HCL [Suspect]
     Route: 042
  14. VINCRISTINE [Suspect]
     Route: 065
  15. PREDNISONE TAB [Suspect]
     Route: 065
  16. MITOXANTRONE [Suspect]
     Indication: DIFFUSE LARGE B-CELL LYMPHOMA
     Route: 065
  17. PREDNISONE TAB [Suspect]
     Indication: DIFFUSE LARGE B-CELL LYMPHOMA
     Route: 065
  18. PREDNISONE TAB [Suspect]
     Route: 065
  19. PREDNISONE TAB [Suspect]
     Route: 065
  20. MITOXANTRONE [Suspect]
     Route: 065
  21. CYCLOPHOSPHAMIDE [Suspect]
     Route: 065
  22. CYCLOPHOSPHAMIDE [Suspect]
     Route: 065
  23. CYCLOPHOSPHAMIDE [Suspect]
     Route: 065
  24. DOXORUBICIN HCL [Suspect]
     Route: 042
  25. VINCRISTINE [Suspect]
     Indication: DIFFUSE LARGE B-CELL LYMPHOMA
     Route: 065
  26. VINCRISTINE [Suspect]
     Route: 065
  27. PREDNISONE TAB [Suspect]
     Route: 065
  28. PREDNISONE TAB [Suspect]
     Route: 065
  29. VINCRISTINE [Suspect]
     Route: 065
  30. MITOXANTRONE [Suspect]
     Route: 065

REACTIONS (1)
  - CARDIAC FAILURE [None]
